FAERS Safety Report 7399843-4 (Version None)
Quarter: 2011Q2

REPORT INFORMATION
  Report Type: 
  Country: None (occurrence: None)
  Receive Date: 20110407
  Receipt Date: 20110401
  Transmission Date: 20111010
  Serious: Yes (Other)
  Sender: FDA-Public Use
  Company Number: CO-PFIZER INC-2011073819

PATIENT
  Sex: Male

DRUGS (1)
  1. SILDENAFIL CITRATE [Suspect]
     Dosage: 50 MG, 2X/DAY
     Route: 048
     Dates: start: 20090101

REACTIONS (2)
  - SUFFOCATION FEELING [None]
  - THERAPEUTIC REACTION TIME DECREASED [None]
